FAERS Safety Report 22201415 (Version 1)
Quarter: 2023Q2

REPORT INFORMATION
  Report Type: Spontaneous
  Country: US (occurrence: None)
  Receive Date: 20230411
  Receipt Date: 20230411
  Transmission Date: 20230722
  Serious: Yes (Other)
  Sender: FDA-Public Use
  Company Number: None

PATIENT
  Age: 50 Year
  Sex: Female
  Weight: 56.25 kg

DRUGS (1)
  1. WEGOVY [Suspect]
     Active Substance: SEMAGLUTIDE
     Indication: Weight decreased
     Dosage: OTHER QUANTITY : 4 INJECTION(S);?OTHER FREQUENCY : 1 PER WEEK;?
     Route: 058
     Dates: start: 20230401, end: 20230407

REACTIONS (5)
  - Hypersensitivity [None]
  - Abdominal pain upper [None]
  - Abdominal distension [None]
  - Flatulence [None]
  - Gastrointestinal pain [None]

NARRATIVE: CASE EVENT DATE: 20230401
